FAERS Safety Report 12607506 (Version 2)
Quarter: 2016Q3

REPORT INFORMATION
  Report Type: Spontaneous
  Country: ES (occurrence: ES)
  Receive Date: 20160729
  Receipt Date: 20160908
  Transmission Date: 20161109
  Serious: Yes (Death, Hospitalization)
  Sender: FDA-Public Use
  Company Number: ES-IGSA-ES-AGEMED-210782444

PATIENT
  Age: 52 Year
  Sex: Female

DRUGS (12)
  1. CICLOFOSFAMIDA [Suspect]
     Active Substance: CYCLOPHOSPHAMIDE
     Indication: SYSTEMIC LUPUS ERYTHEMATOSUS
     Dosage: 1,12 GR
     Route: 042
     Dates: start: 20150119, end: 20150119
  2. PLANGAMMA [Suspect]
     Active Substance: HUMAN IMMUNOGLOBULIN G
     Indication: SYSTEMIC LUPUS ERYTHEMATOSUS
     Dosage: 20 GR
     Route: 042
     Dates: start: 20150302, end: 20150306
  3. LORAZEPAM. [Concomitant]
     Active Substance: LORAZEPAM
     Indication: ANXIETY
     Dosage: 0-5MG/8H SNG
     Route: 050
     Dates: start: 20150226
  4. ASPIRIN. [Concomitant]
     Active Substance: ASPIRIN
     Indication: ARTERIAL DISORDER
     Dosage: 0-1-0
     Route: 048
     Dates: start: 20150226
  5. HIBOR [Concomitant]
     Active Substance: BEMIPARIN SODIUM
     Indication: ANTIPHOSPHOLIPID SYNDROME
     Dosage: 5000 U
     Route: 058
     Dates: start: 20150114
  6. CITARABINA [Suspect]
     Active Substance: CYTARABINE
     Indication: SYSTEMIC LUPUS ERYTHEMATOSUS
     Dosage: 1.1 GR
     Route: 042
     Dates: start: 20150224, end: 20150227
  7. DEXAMETASONA /00016001/ [Concomitant]
     Active Substance: DEXAMETHASONE
     Indication: ENCEPHALITIS
     Dosage: 8MG/8H
     Route: 042
     Dates: start: 20150306
  8. ONDANSETRON [Concomitant]
     Active Substance: ONDANSETRON
     Indication: VOMITING
     Dosage: 8MG/8H
     Route: 042
     Dates: start: 20150119
  9. PANTOPRAZOL [Concomitant]
     Active Substance: PANTOPRAZOLE SODIUM
     Indication: PROPHYLAXIS
     Dosage: 1 AMP
     Route: 042
     Dates: start: 20150110
  10. ROMIPLOSTIM [Concomitant]
     Active Substance: ROMIPLOSTIM
     Indication: THROMBOCYTOPENIA
     Dosage: 165 MG
     Route: 058
     Dates: start: 20150226
  11. PLANGAMMA [Suspect]
     Active Substance: HUMAN IMMUNOGLOBULIN G
     Indication: SYSTEMIC LUPUS ERYTHEMATOSUS
     Route: 042
     Dates: start: 20150124, end: 20150128
  12. LACOSAMIDA [Concomitant]
     Indication: PROPHYLAXIS
     Dosage: 50MG/12H
     Route: 042
     Dates: start: 20150211

REACTIONS (1)
  - Aplastic anaemia [Not Recovered/Not Resolved]

NARRATIVE: CASE EVENT DATE: 20150310
